FAERS Safety Report 21990999 (Version 1)
Quarter: 2023Q1

REPORT INFORMATION
  Report Type: Spontaneous
  Country: US (occurrence: US)
  Receive Date: 20230214
  Receipt Date: 20230214
  Transmission Date: 20230417
  Serious: No
  Sender: FDA-Public Use
  Company Number: US-SA-SAC20230213000291

PATIENT
  Age: 54 Year
  Sex: Female
  Weight: 76.65 kg

DRUGS (5)
  1. DUPIXENT [Suspect]
     Active Substance: DUPILUMAB
     Indication: Dermatitis atopic
     Dosage: 300 MG, QOW
     Route: 058
     Dates: start: 202210
  2. BACLOFEN [Concomitant]
     Active Substance: BACLOFEN
     Dosage: 5 MG
  3. NORTRIPTYLINE HYDROCHLORIDE [Concomitant]
     Active Substance: NORTRIPTYLINE HYDROCHLORIDE
     Dosage: 25 MG
  4. LYRICA [Concomitant]
     Active Substance: PREGABALIN
     Dosage: 75 MG
  5. PROBI [Concomitant]
     Dosage: UNK; PROBICHEW 21B-1 G TAB CHEW

REACTIONS (1)
  - Rash macular [Not Recovered/Not Resolved]

NARRATIVE: CASE EVENT DATE: 20230207
